FAERS Safety Report 19604578 (Version 6)
Quarter: 2022Q1

REPORT INFORMATION
  Report Type: Spontaneous
  Country: BR (occurrence: BR)
  Receive Date: 20210723
  Receipt Date: 20220209
  Transmission Date: 20220424
  Serious: Yes (Death, Life-Threatening, Hospitalization, Other)
  Sender: FDA-Public Use
  Company Number: BR-BRISTOL-MYERS SQUIBB COMPANY-BMS-2021-071609

PATIENT
  Age: 49 Year
  Sex: Female
  Weight: 62 kg

DRUGS (13)
  1. NIVOLUMAB [Suspect]
     Active Substance: NIVOLUMAB
     Indication: Squamous cell carcinoma of the oral cavity
     Dosage: 480 MILLIGRAM, Q4WK
     Route: 042
     Dates: start: 20190321, end: 20210611
  2. NIVOLUMAB [Suspect]
     Active Substance: NIVOLUMAB
     Dosage: 480 MILLIGRAM
     Route: 042
     Dates: start: 20210703
  3. CEFTAZIDIME [Concomitant]
     Active Substance: CEFTAZIDIME
     Indication: Bacterial infection
     Dosage: 2 GRAM, Q8H
     Route: 065
     Dates: start: 20210714, end: 20210720
  4. CEFTAZIDIME [Concomitant]
     Active Substance: CEFTAZIDIME
     Dosage: 2G (8/8H)
     Route: 042
     Dates: start: 20210717, end: 20210720
  5. CEFTAZIDIME [Concomitant]
     Active Substance: CEFTAZIDIME
     Dosage: UNK
     Route: 065
     Dates: start: 20210712
  6. TAZOBACTAM [Concomitant]
     Active Substance: TAZOBACTAM
     Indication: Bacterial infection
     Dosage: 4.5 (6/6H)
     Route: 042
     Dates: start: 20210712, end: 20210714
  7. MYCOPHENOLIC ACID [Concomitant]
     Active Substance: MYCOPHENOLIC ACID
     Indication: Immunosuppressant drug therapy
     Dosage: 5 GRAM, QD (NASOENTERAL PROBE)
     Route: 050
     Dates: start: 20210710, end: 20210723
  8. METHYLPREDNISOLONE [Concomitant]
     Active Substance: METHYLPREDNISOLONE
     Indication: Antiallergic therapy
     Dosage: 80 MILLIGRAM, QD
     Route: 042
     Dates: start: 20210703, end: 20210723
  9. ACETAMINOPHEN [Concomitant]
     Active Substance: ACETAMINOPHEN
     Indication: Analgesic therapy
     Dosage: 50 MG (8/8H)
     Route: 048
     Dates: start: 20210711, end: 20210711
  10. VITAMIN K [CALCIUM PHOSPHATE DIBASIC;PHYTOMENADIONE] [Concomitant]
     Indication: Electrolyte substitution therapy
     Dosage: 10 MILLIGRAM, QD
     Route: 040
     Dates: start: 20210706, end: 20210722
  11. VITAMIN K [CALCIUM PHOSPHATE DIBASIC;PHYTOMENADIONE] [Concomitant]
     Dosage: UNK
     Route: 048
  12. ONDANSETRON [Concomitant]
     Active Substance: ONDANSETRON
     Indication: Prophylaxis
     Dosage: 8 MILLIGRAM
     Route: 042
     Dates: start: 20210703, end: 20210723
  13. LACTULOSE [Concomitant]
     Active Substance: LACTULOSE
     Indication: Laxative supportive care
     Dosage: 30 ML, TID (NASOENTERAL PROBE)
     Route: 050
     Dates: start: 20210707, end: 20210723

REACTIONS (3)
  - Acute hepatic failure [Fatal]
  - Hepatic encephalopathy [Not Recovered/Not Resolved]
  - Pseudomonal sepsis [Not Recovered/Not Resolved]

NARRATIVE: CASE EVENT DATE: 20210703
